FAERS Safety Report 8901986 (Version 4)
Quarter: 2013Q3

REPORT INFORMATION
  Report Type: Spontaneous
  Country: US (occurrence: US)
  Receive Date: 20121112
  Receipt Date: 20130919
  Transmission Date: 20140515
  Serious: Yes (Hospitalization, Disabling, Other)
  Sender: FDA-Public Use
  Company Number: US-009507513-1211USA003068

PATIENT
  Sex: Female
  Weight: 77.98 kg

DRUGS (13)
  1. FOSAMAX [Suspect]
     Indication: OSTEOPOROSIS
     Dosage: 70 MG, QW
     Route: 048
     Dates: start: 20021002, end: 2006
  2. FOSAMAX [Suspect]
     Indication: OSTEOPENIA
  3. FOSAMAX [Suspect]
     Indication: OSTEOPOROSIS
     Route: 048
  4. FOSAMAX [Suspect]
     Indication: OSTEOPOROSIS PROPHYLAXIS
  5. BONIVA [Suspect]
     Indication: OSTEOPOROSIS
     Dosage: 150 MG, QM
     Route: 048
     Dates: start: 2006, end: 200906
  6. BONIVA [Suspect]
     Indication: OSTEOPENIA
  7. RECLAST [Suspect]
     Indication: OSTEOPOROSIS
     Dosage: UNK, ONCE
     Route: 042
  8. RECLAST [Suspect]
     Indication: OSTEOPENIA
  9. VITAMINS (UNSPECIFIED) [Concomitant]
     Dosage: UNK
     Dates: start: 1972
  10. CALCIUM (UNSPECIFIED) (+) VITAMIN D (UNSPECIFIED) [Concomitant]
     Dosage: UNK
     Dates: start: 1982
  11. ALLEGRA [Concomitant]
  12. NEXIUM [Concomitant]
     Indication: GASTROOESOPHAGEAL REFLUX DISEASE
     Dosage: 40 MG, BID
     Route: 048
  13. TUMS [Concomitant]
     Indication: GASTROOESOPHAGEAL REFLUX DISEASE
     Dosage: UNK

REACTIONS (34)
  - Femur fracture [Unknown]
  - Femur fracture [Unknown]
  - Multiple sclerosis [Not Recovered/Not Resolved]
  - Appendicectomy [Unknown]
  - Intramedullary rod insertion [Unknown]
  - Chest pain [Unknown]
  - Anaemia postoperative [Unknown]
  - Intramedullary rod insertion [Unknown]
  - Cholecystectomy [Unknown]
  - Renal failure [Unknown]
  - Fall [Unknown]
  - Packed red blood cell transfusion [Unknown]
  - Back pain [Unknown]
  - Abdominal pain upper [Unknown]
  - Weight increased [Unknown]
  - Low turnover osteopathy [Unknown]
  - Mammogram abnormal [Unknown]
  - Ischaemia [Unknown]
  - Sleep apnoea syndrome [Unknown]
  - Demyelination [Unknown]
  - Treatment noncompliance [Unknown]
  - Obesity [Unknown]
  - Treatment noncompliance [Unknown]
  - Hypertension [Unknown]
  - Atelectasis [Unknown]
  - Tooth extraction [Unknown]
  - Osteoarthritis [Unknown]
  - Irritable bowel syndrome [Unknown]
  - Migraine [Unknown]
  - Osteoarthritis [Unknown]
  - Muscle strain [Unknown]
  - Fatigue [Unknown]
  - Gastric ulcer [Unknown]
  - Dizziness [Unknown]
